FAERS Safety Report 6701414-7 (Version None)
Quarter: 2010Q2

REPORT INFORMATION
  Report Type: 
  Country: None (occurrence: None)
  Receive Date: 20100429
  Receipt Date: 20100415
  Transmission Date: 20101027
  Serious: Yes (Hospitalization)
  Sender: FDA-Public Use
  Company Number: CI-RANBAXY-2010RR-32648

PATIENT
  Age: 45 Year
  Sex: Male
  Weight: 66 kg

DRUGS (14)
  1. STAVUDINE [Suspect]
     Indication: HIV INFECTION
     Dosage: UNK
     Dates: start: 19991101, end: 20010701
  2. DIDANOSINE [Suspect]
     Indication: HIV INFECTION
     Dosage: UNK
     Dates: start: 19991101
  3. DIDANOSINE [Suspect]
     Dosage: UNK
     Dates: start: 20020701
  4. NELFINAVIR MESYLATE [Suspect]
     Indication: HIV INFECTION
     Dosage: UNK
     Dates: start: 19991101
  5. NELFINAVIR MESYLATE [Suspect]
     Dosage: UNK
     Dates: start: 20010701
  6. NELFINAVIR MESYLATE [Suspect]
     Dosage: UNK
     Dates: start: 20020701
  7. ZIDOVUDINE [Suspect]
     Indication: HIV INFECTION
     Dosage: UNK
     Dates: start: 20010701
  8. ZIDOVUDINE [Suspect]
     Dosage: UNK
     Dates: start: 20020701
  9. ABACAVIR SULFATE [Suspect]
     Indication: HIV INFECTION
     Dosage: UNK
     Dates: start: 20031001
  10. LAMIVUDINE [Suspect]
     Indication: HIV INFECTION
     Dosage: UNK
     Dates: start: 20031001
  11. LAMIVUDINE [Suspect]
     Dosage: UNK
     Dates: start: 20031001
  12. RITONAVIR/SAQUINAVIR [Suspect]
     Indication: HIV INFECTION
     Dosage: UNK
     Dates: start: 20031001, end: 20040701
  13. LOPINAVIR AND RITONAVIR [Suspect]
     Indication: HIV INFECTION
     Dosage: UNK
     Dates: start: 20040701
  14. INDINAVIR/RITONAVIR [Suspect]
     Indication: HIV INFECTION

REACTIONS (1)
  - OSTEONECROSIS [None]
